FAERS Safety Report 18670692 (Version 1)
Quarter: 2020Q4

REPORT INFORMATION
  Report Type: Spontaneous
  Country: US (occurrence: US)
  Receive Date: 20201228
  Receipt Date: 20201228
  Transmission Date: 20210114
  Serious: Yes (Death, Other)
  Sender: FDA-Public Use
  Company Number: US-ASTELLAS-2020US041774

PATIENT
  Age: 67 Year
  Sex: Male

DRUGS (1)
  1. AMBISOME [Suspect]
     Active Substance: AMPHOTERICIN B
     Indication: MUCORMYCOSIS
     Dosage: UNK UNK, UNKNOWN FREQ. (2 TRANSCUTANEOUS RETROBULBAR INJECTIONS)
     Route: 056

REACTIONS (3)
  - Drug ineffective [Fatal]
  - Parophthalmia [Unknown]
  - Off label use [Unknown]
